FAERS Safety Report 7633984-9 (Version None)
Quarter: 2011Q3

REPORT INFORMATION
  Report Type: 
  Country: None (occurrence: None)
  Receive Date: 20110725
  Receipt Date: 20110718
  Transmission Date: 20111222
  Serious: Yes (Hospitalization, Other)
  Sender: FDA-Public Use
  Company Number: US-PFIZER INC-2010085207

PATIENT
  Sex: Female

DRUGS (6)
  1. ZOCOR [Concomitant]
     Indication: BLOOD CHOLESTEROL INCREASED
     Dosage: UNK
     Dates: start: 20000101
  2. ACIPHEX [Concomitant]
     Indication: GASTROOESOPHAGEAL REFLUX DISEASE
     Dosage: UNK
     Dates: start: 20060101, end: 20080101
  3. MONTELUKAST SODIUM [Concomitant]
     Indication: DYSPNOEA
     Dosage: UNK
     Dates: start: 20040101, end: 20080101
  4. CHANTIX [Suspect]
     Indication: SMOKING CESSATION THERAPY
     Dosage: UNK
     Dates: start: 20071207, end: 20080128
  5. ZYRTEC [Concomitant]
     Indication: ANTIALLERGIC THERAPY
     Dosage: UNK
     Dates: start: 20000101
  6. FLONASE [Concomitant]
     Indication: SINUS DISORDER
     Dosage: UNK
     Dates: start: 20000101, end: 20100101

REACTIONS (9)
  - MOOD SWINGS [None]
  - PARANOIA [None]
  - MANIA [None]
  - ANXIETY [None]
  - HOSTILITY [None]
  - SUICIDE ATTEMPT [None]
  - OVERDOSE [None]
  - LOSS OF CONSCIOUSNESS [None]
  - DEPRESSION [None]
